FAERS Safety Report 25339199 (Version 2)
Quarter: 2025Q2

REPORT INFORMATION
  Report Type: Spontaneous
  Country: GB (occurrence: GB)
  Receive Date: 20250521
  Receipt Date: 20250606
  Transmission Date: 20250717
  Serious: Yes (Other)
  Sender: TEVA
  Company Number: GB-STRIDES PHARMA UK LTD.-2025SP006035

PATIENT
  Age: 30 Year
  Sex: Male

DRUGS (3)
  1. CLOTRIMAZOLE [Suspect]
     Active Substance: CLOTRIMAZOLE
     Indication: Tinea pedis
     Route: 061
  2. HYDROCORTISONE [Suspect]
     Active Substance: HYDROCORTISONE
     Indication: Tinea pedis
     Route: 065
  3. HYDROCORTISONE [Suspect]
     Active Substance: HYDROCORTISONE
     Indication: Tinea pedis
     Route: 061

REACTIONS (2)
  - Cerebrovascular accident [Unknown]
  - Off label use [Unknown]
